FAERS Safety Report 11273840 (Version 2)
Quarter: 2015Q3

REPORT INFORMATION
  Report Type: Spontaneous
  Country: AT (occurrence: AT)
  Receive Date: 20150715
  Receipt Date: 20150717
  Transmission Date: 20151125
  Serious: Yes (Other)
  Sender: FDA-Public Use
  Company Number: AT-PFIZER INC-2015229180

PATIENT
  Age: 21 Year
  Sex: Male

DRUGS (1)
  1. PHENYTOIN. [Suspect]
     Active Substance: PHENYTOIN
     Indication: EPILEPSY
     Dosage: 400 MG, DAILY

REACTIONS (3)
  - Anticonvulsant drug level increased [Unknown]
  - Cerebellar atrophy [Unknown]
  - Nystagmus [Unknown]
